FAERS Safety Report 4834341-0 (Version None)
Quarter: 2005Q4

REPORT INFORMATION
  Report Type: 
  Country: None (occurrence: None)
  Receive Date: 20051122
  Receipt Date: 20051004
  Transmission Date: 20060501
  Serious: Yes (Death, Hospitalization, Other)
  Sender: FDA-Public Use
  Company Number: US-MERCK-0510USA02226

PATIENT
  Age: 84 Year
  Sex: Male
  Weight: 77 kg

DRUGS (1)
  1. VIOXX [Suspect]
     Indication: ARTHRITIS
     Route: 048
     Dates: start: 20010101, end: 20040101

REACTIONS (6)
  - CAROTID ARTERY OCCLUSION [None]
  - DEATH [None]
  - DEMENTIA [None]
  - MYOCARDIAL INFARCTION [None]
  - RENAL FAILURE [None]
  - THROMBOSIS [None]
